FAERS Safety Report 9106499 (Version 1)
Quarter: 2013Q1

REPORT INFORMATION
  Report Type: Report from Study
  Country: AU (occurrence: AU)
  Receive Date: 20130219
  Receipt Date: 20130219
  Transmission Date: 20140127
  Serious: Yes (Other)
  Sender: FDA-Public Use
  Company Number: AU-ROCHE-1192073

PATIENT
  Sex: Male

DRUGS (10)
  1. ACTEMRA [Suspect]
     Indication: RHEUMATOID ARTHRITIS
     Route: 042
     Dates: end: 20130117
  2. METROL (AUSTRALIA) [Concomitant]
     Dosage: DOSE : 1/2 TAB
     Route: 048
  3. EZETIMIBE [Concomitant]
     Route: 048
  4. SOLONE [Concomitant]
     Route: 065
  5. ASTRIX [Concomitant]
     Route: 065
  6. NEXIUM [Concomitant]
     Indication: GASTROOESOPHAGEAL REFLUX DISEASE
     Route: 065
  7. TRAMADOL [Concomitant]
     Indication: BACK PAIN
     Route: 065
  8. VENTOLINE INHALER [Concomitant]
     Indication: ASTHMA
     Route: 065
  9. FOLIC ACID [Concomitant]
     Route: 048
  10. METHOTREXATE [Concomitant]
     Indication: RHEUMATOID ARTHRITIS
     Dosage: DOSE: 1 1/2 TAB
     Route: 048

REACTIONS (2)
  - Cough [Unknown]
  - Bradycardia [Unknown]
